FAERS Safety Report 8208374 (Version 8)
Quarter: 2014Q3

REPORT INFORMATION
  Report Type: Report from Study
  Country: US (occurrence: US)
  Receive Date: 20111028
  Receipt Date: 20140722
  Transmission Date: 20150326
  Serious: Yes (Death, Hospitalization, Other)
  Sender: FDA-Public Use
  Company Number: US-BRISTOL-MYERS SQUIBB COMPANY-16192171

PATIENT
  Age: 82 Year
  Sex: Male
  Weight: 74.84 kg

DRUGS (1)
  1. YERVOY [Suspect]
     Active Substance: IPILIMUMAB
     Indication: MALIGNANT MELANOMA
     Dosage: NO OF COURSES:4; LAST DOSE ON 13SEP2011,10MG/KG,MAINTENANCE THERAPY: ONCE EVERY 12WKS
     Route: 042
     Dates: start: 20110711, end: 20110913

REACTIONS (6)
  - Respiratory failure [Not Recovered/Not Resolved]
  - Renal failure acute [Not Recovered/Not Resolved]
  - International normalised ratio increased [Not Recovered/Not Resolved]
  - Multi-organ failure [Fatal]
  - Activated partial thromboplastin time prolonged [Not Recovered/Not Resolved]
  - Hepatic failure [Not Recovered/Not Resolved]

NARRATIVE: CASE EVENT DATE: 20111021
